FAERS Safety Report 9813328 (Version 1)
Quarter: 2014Q1

REPORT INFORMATION
  Report Type: Spontaneous
  Country: IN (occurrence: None)
  Receive Date: 20140109
  Receipt Date: 20140109
  Transmission Date: 20141002
  Serious: Yes (Hospitalization)
  Sender: FDA-Public Use
  Company Number: LEVE20140001

PATIENT
  Age: 56 Year
  Sex: Male

DRUGS (2)
  1. LEVETIRACETAM TABLETS {LEVETIRACETAM} {TABLETS} {LEVETIRACETAM} [Suspect]
     Indication: STATUS EPILEPTICUS
     Dosage: 1500 MG, DAILY, ORAL
     Route: 048
  2. LEVETIRACETAM {LEVETIRACETAM} {UNKNOWN} {LEVETIRACETAM} [Concomitant]

REACTIONS (6)
  - Somnolence [None]
  - Confusional state [None]
  - Partial seizures [None]
  - Demyelination [None]
  - Toxic encephalopathy [None]
  - Computerised tomogram head abnormal [None]
